FAERS Safety Report 6589594-8 (Version None)
Quarter: 2010Q1

REPORT INFORMATION
  Report Type: 
  Country: None (occurrence: None)
  Receive Date: 20100212
  Receipt Date: 20100127
  Transmission Date: 20100710
  Serious: Yes (Disabling)
  Sender: FDA-Public Use
  Company Number: 230986J10USA

PATIENT
  Age: 33 Year
  Sex: Female

DRUGS (4)
  1. REBIF [Suspect]
     Indication: MULTIPLE SCLEROSIS
     Dosage: 44 MCG, 3 IN 1 WEEKS, SUBCUTANEOUS
     Route: 058
     Dates: start: 20091115
  2. TYLENOL [Concomitant]
  3. IBUPROFEN [Concomitant]
  4. UNSPECIFIED STEROIDS (CORTICOSTEROIDS) [Concomitant]

REACTIONS (3)
  - LABORATORY TEST ABNORMAL [None]
  - MULTIPLE SCLEROSIS RELAPSE [None]
  - NERVE INJURY [None]
